FAERS Safety Report 16331061 (Version 1)
Quarter: 2019Q2

REPORT INFORMATION
  Report Type: Spontaneous
  Country: US (occurrence: US)
  Receive Date: 20190517
  Receipt Date: 20190517
  Transmission Date: 20190711
  Serious: Yes (Hospitalization)
  Sender: FDA-Public Use
  Company Number: None

PATIENT
  Age: 66 Year
  Sex: Male

DRUGS (2)
  1. HUMIRA [Suspect]
     Active Substance: ADALIMUMAB
     Indication: ARTHRITIS
     Dosage: ?          OTHER FREQUENCY:EVERY OTHER WEEK;?
     Route: 058
     Dates: start: 20171215
  2. NONE LISTED [Concomitant]

REACTIONS (4)
  - Cardiac disorder [None]
  - Therapy cessation [None]
  - Influenza [None]
  - Spinal operation [None]

NARRATIVE: CASE EVENT DATE: 20190329
